FAERS Safety Report 6406055-7 (Version None)
Quarter: 2009Q4

REPORT INFORMATION
  Report Type: 
  Country: None (occurrence: None)
  Receive Date: 20091019
  Receipt Date: 20091013
  Transmission Date: 20100525
  Serious: Yes (Hospitalization)
  Sender: FDA-Public Use
  Company Number: JP-ALLERGAN-0913575US

PATIENT
  Age: 5 Year
  Sex: Female
  Weight: 10.1 kg

DRUGS (7)
  1. BOTOX [Suspect]
     Indication: TORTICOLLIS
     Dosage: 40 UNITS, SINGLE
     Route: 030
     Dates: start: 20090924, end: 20090924
  2. CHINESE MEDICINE [Concomitant]
     Indication: CONSTIPATION
     Dosage: 2.5 G, UNK
     Route: 048
  3. ONON DRYSYRUP [Concomitant]
     Indication: ASTHMA
     Dosage: 35 MG, UNK
     Route: 048
  4. GASMOTIN [Concomitant]
     Indication: CONSTIPATION
     Dosage: 1.7 MG, UNK
     Route: 048
  5. PERIACTIN [Concomitant]
     Indication: SALIVARY HYPERSECRETION
     Dosage: 0.7 MG, UNK
     Route: 048
  6. HYSERENIN [Concomitant]
     Indication: EPILEPSY
     Route: 048
  7. GASCON [Concomitant]
     Indication: ABDOMINAL DISTENSION
     Dosage: 10 MG, UNK
     Route: 048

REACTIONS (3)
  - ASTHENIA [None]
  - ILEUS PARALYTIC [None]
  - URINARY RETENTION [None]
